FAERS Safety Report 6154202-7 (Version None)
Quarter: 2009Q2

REPORT INFORMATION
  Report Type: 
  Country: None (occurrence: None)
  Receive Date: 20090414
  Receipt Date: 20090406
  Transmission Date: 20091009
  Serious: Yes (Other)
  Sender: FDA-Public Use
  Company Number: IT-ABBOTT-09P-083-0567402-00

PATIENT
  Age: 71 Year
  Sex: Male

DRUGS (1)
  1. BAREON [Suspect]
     Indication: URINARY TRACT INFECTION
     Route: 048
     Dates: start: 20041101, end: 20041204

REACTIONS (1)
  - ERYTHEMA MULTIFORME [None]
